FAERS Safety Report 9585852 (Version 1)
Quarter: 2013Q3

REPORT INFORMATION
  Report Type: Spontaneous
  Country: DK (occurrence: None)
  Receive Date: 20130926
  Receipt Date: 20130926
  Transmission Date: 20140515
  Serious: Yes (Hospitalization)
  Sender: FDA-Public Use
  Company Number: 2012-01300

PATIENT
  Age: 3 Year
  Sex: Female
  Weight: 15 kg

DRUGS (1)
  1. VALPROIC ACID [Suspect]
     Indication: EPILEPSY
     Dosage: (ORAL DROPS OF VALPROATE 100 MG/ML) 100 + 150 MG DAILY (UNKNOWN, UNK), ORAL
     Route: 048

REACTIONS (3)
  - Accidental overdose [None]
  - Ammonia increased [None]
  - Blood lactic acid increased [None]
